FAERS Safety Report 12958978 (Version 1)
Quarter: 2016Q4

REPORT INFORMATION
  Report Type: Spontaneous
  Country: US (occurrence: US)
  Receive Date: 20161117
  Receipt Date: 20161117
  Transmission Date: 20170207
  Serious: Yes (Hospitalization)
  Sender: FDA-Public Use
  Company Number: None

PATIENT
  Age: 30 Year
  Sex: Female

DRUGS (6)
  1. LITHIUM. [Concomitant]
     Active Substance: LITHIUM
  2. METHADONE [Concomitant]
     Active Substance: METHADONE HYDROCHLORIDE
  3. CLONIDINE. [Suspect]
     Active Substance: CLONIDINE
     Indication: HYPERTENSION
     Route: 048
     Dates: start: 20160911
  4. CLONAZEPAM. [Concomitant]
     Active Substance: CLONAZEPAM
  5. ALPRAZOLAM. [Suspect]
     Active Substance: ALPRAZOLAM
     Route: 048
  6. RISPERIDONE. [Concomitant]
     Active Substance: RISPERIDONE

REACTIONS (10)
  - Withdrawal syndrome [None]
  - Vomiting [None]
  - Liver function test increased [None]
  - Mydriasis [None]
  - Headache [None]
  - Agitation [None]
  - Nausea [None]
  - Stress [None]
  - Hypertension [None]
  - Vision blurred [None]

NARRATIVE: CASE EVENT DATE: 20160911
